FAERS Safety Report 25811750 (Version 1)
Quarter: 2025Q3

REPORT INFORMATION
  Report Type: Spontaneous
  Country: GB (occurrence: GB)
  Receive Date: 20250917
  Receipt Date: 20250917
  Transmission Date: 20251020
  Serious: Yes (Death, Hospitalization)
  Sender: AMGEN
  Company Number: GB-AMGEN-GBRSP2025180838

PATIENT
  Age: 77 Year
  Sex: Female

DRUGS (2)
  1. XGEVA [Suspect]
     Active Substance: DENOSUMAB
     Indication: Hypercalcaemia
     Route: 065
  2. PAMIDRONATE [Concomitant]
     Active Substance: PAMIDRONATE DISODIUM
     Indication: Hypercalcaemia

REACTIONS (8)
  - Death [Fatal]
  - Lymphadenopathy [Unknown]
  - Respiratory failure [Unknown]
  - Sepsis [Unknown]
  - Urinary tract infection [Unknown]
  - Pneumonia [Unknown]
  - Granulomatous pneumonitis [Unknown]
  - C-reactive protein increased [Unknown]
